FAERS Safety Report 23283694 (Version 2)
Quarter: 2024Q2

REPORT INFORMATION
  Report Type: Spontaneous
  Country: US (occurrence: US)
  Receive Date: 20231211
  Receipt Date: 20240531
  Transmission Date: 20240716
  Serious: No
  Sender: FDA-Public Use
  Company Number: US-BRISTOL-MYERS SQUIBB COMPANY-2023-179037

PATIENT
  Age: 74 Year
  Sex: Female

DRUGS (2)
  1. LENALIDOMIDE [Suspect]
     Active Substance: LENALIDOMIDE
     Indication: Anaemia
     Route: 048
     Dates: start: 20231205
  2. LENALIDOMIDE [Suspect]
     Active Substance: LENALIDOMIDE
     Route: 048

REACTIONS (8)
  - Nausea [Not Recovered/Not Resolved]
  - Diarrhoea [Not Recovered/Not Resolved]
  - Toothache [Not Recovered/Not Resolved]
  - Off label use [Unknown]
  - Pain in extremity [Unknown]
  - Swelling [Unknown]
  - Fatigue [Unknown]
  - Decreased appetite [Unknown]
